FAERS Safety Report 7297082-9 (Version None)
Quarter: 2011Q1

REPORT INFORMATION
  Report Type: 
  Country: None (occurrence: None)
  Receive Date: 20110216
  Receipt Date: 20110207
  Transmission Date: 20110831
  Serious: Yes (Other)
  Sender: FDA-Public Use
  Company Number: US-ASTRAZENECA-2011SE06761

PATIENT
  Age: 58 Year
  Sex: Female
  Weight: 82.1 kg

DRUGS (6)
  1. GLUCOPHAGE [Concomitant]
     Indication: DIABETES MELLITUS
     Dosage: 1000MG, BID
  2. EFFEXOR [Concomitant]
     Indication: BIPOLAR DISORDER
  3. LISINOPRIL [Concomitant]
     Indication: HYPERTENSION
  4. SEROQUEL [Suspect]
     Indication: SLEEP DISORDER
     Route: 048
     Dates: start: 20100801
  5. SEROQUEL [Suspect]
     Indication: BIPOLAR DISORDER
     Route: 048
     Dates: start: 20100801
  6. GLIPIZIDE [Concomitant]
     Indication: DIABETES MELLITUS

REACTIONS (2)
  - FOOT FRACTURE [None]
  - FALL [None]
